FAERS Safety Report 8294175-4 (Version None)
Quarter: 2012Q2

REPORT INFORMATION
  Report Type: 
  Country: None (occurrence: None)
  Receive Date: 20120418
  Receipt Date: 20120413
  Transmission Date: 20120825
  Serious: Yes (Death)
  Sender: FDA-Public Use
  Company Number: PHHY2011CA24148

PATIENT
  Sex: Female

DRUGS (10)
  1. EXJADE [Suspect]
     Dosage: 1500 MG
     Route: 048
     Dates: end: 20110611
  2. PANTOPRAZOLE SODIUM [Concomitant]
  3. AVAPRO [Concomitant]
  4. DOMPERIDONE [Concomitant]
  5. EXJADE [Suspect]
     Indication: MYELODYSPLASTIC SYNDROME
     Dosage: 2500 MG
     Route: 048
     Dates: end: 20110301
  6. EXJADE [Suspect]
     Dosage: 1250 MG, UNK
     Route: 048
  7. AVALIDE [Concomitant]
  8. CALCIUM CARBONATE [Concomitant]
  9. HYDROCHLOROTHIAZIDE [Concomitant]
  10. MAVIK [Concomitant]

REACTIONS (11)
  - RENAL FAILURE [None]
  - NEOPLASM MALIGNANT [None]
  - RASH [None]
  - DRY SKIN [None]
  - HEPATIC LESION [None]
  - LUNG DISORDER [None]
  - ASTHENIA [None]
  - BLOOD CREATININE INCREASED [None]
  - PARAESTHESIA [None]
  - RENAL DISORDER [None]
  - URINE OUTPUT DECREASED [None]
